FAERS Safety Report 5296321-3 (Version None)
Quarter: 2007Q2

REPORT INFORMATION
  Report Type: 
  Country: None (occurrence: None)
  Receive Date: 20070413
  Receipt Date: 20070402
  Transmission Date: 20071010
  Serious: Yes (Life-Threatening)
  Sender: FDA-Public Use
  Company Number: NO-JNJFOC-20070400363

PATIENT
  Sex: Male

DRUGS (5)
  1. REMICADE [Suspect]
     Indication: CROHN'S DISEASE
     Dosage: 9 TREATMENTS IN TOTAL
     Route: 042
  2. AZATHIOPRINE SODIUM [Suspect]
     Indication: CROHN'S DISEASE
  3. HUMIRA [Suspect]
  4. HUMIRA [Suspect]
     Indication: CROHN'S DISEASE
  5. COLAZID [Concomitant]
     Indication: CROHN'S DISEASE

REACTIONS (1)
  - DIFFUSE LARGE B-CELL LYMPHOMA [None]
